FAERS Safety Report 4350015-7 (Version None)
Quarter: 2004Q2

REPORT INFORMATION
  Report Type: 
  Country: None (occurrence: None)
  Receive Date: 20040428
  Receipt Date: 20040428
  Transmission Date: 20050107
  Serious: Yes (Disabling)
  Sender: FDA-Public Use
  Company Number: None

PATIENT
  Age: 21 Year
  Sex: Female
  Weight: 72.5755 kg

DRUGS (1)
  1. ORTHO EVRA [Suspect]

REACTIONS (5)
  - ABDOMINAL PAIN UPPER [None]
  - MARKEDLY REDUCED DIETARY INTAKE [None]
  - MOBILITY DECREASED [None]
  - NAUSEA [None]
  - VOMITING [None]
